FAERS Safety Report 14164289 (Version 4)
Quarter: 2018Q4

REPORT INFORMATION
  Report Type: Report from Study
  Country: CA (occurrence: CA)
  Receive Date: 20171107
  Receipt Date: 20181026
  Transmission Date: 20190204
  Serious: Yes (Hospitalization, Other)
  Sender: FDA-Public Use
  Company Number: CA-AMGEN-CANSL2017147426

PATIENT
  Age: 37 Year
  Sex: Female

DRUGS (5)
  1. SALAZOPYRINE [Suspect]
     Active Substance: SULFASALAZINE
     Indication: PRODUCT USED FOR UNKNOWN INDICATION
     Dosage: 2 PILLS, BID
     Route: 065
  2. SALAZOPYRINE [Suspect]
     Active Substance: SULFASALAZINE
     Dosage: 1 PILL BID
     Route: 065
  3. SULFASALAZINE. [Suspect]
     Active Substance: SULFASALAZINE
     Indication: PRODUCT USED FOR UNKNOWN INDICATION
     Dosage: 1 TABLET, BID
     Route: 065
  4. SULFASALAZINE. [Suspect]
     Active Substance: SULFASALAZINE
     Dosage: 2 TABLET, BID
     Route: 065
  5. ENBREL [Suspect]
     Active Substance: ETANERCEPT
     Indication: ANKYLOSING SPONDYLITIS
     Dosage: 50 MG, QWK
     Route: 065
     Dates: start: 20170630, end: 2017

REACTIONS (16)
  - Headache [Unknown]
  - Therapy non-responder [Unknown]
  - Fatigue [Unknown]
  - Influenza like illness [Unknown]
  - Pain [Unknown]
  - Clostridium difficile infection [Unknown]
  - General physical health deterioration [Unknown]
  - Ehlers-Danlos syndrome [Unknown]
  - Fungal infection [Unknown]
  - Alopecia [Unknown]
  - Drug ineffective [Unknown]
  - Nosocomial infection [Unknown]
  - Adverse drug reaction [Unknown]
  - Vomiting [Unknown]
  - Injection site pain [Unknown]
  - Nausea [Unknown]

NARRATIVE: CASE EVENT DATE: 2017
